FAERS Safety Report 8201264-9 (Version None)
Quarter: 2012Q1

REPORT INFORMATION
  Report Type: 
  Country: None (occurrence: None)
  Receive Date: 20120312
  Receipt Date: 20120306
  Transmission Date: 20120608
  Serious: Yes (Hospitalization, Other)
  Sender: FDA-Public Use
  Company Number: PHHY2011JP111446

PATIENT
  Age: 29 Year
  Sex: Female
  Weight: 49 kg

DRUGS (8)
  1. CLOZARIL [Suspect]
     Indication: SCHIZOPHRENIA, UNDIFFERENTIATED TYPE
     Dosage: 12.5 MG, UNK
     Route: 048
     Dates: start: 20111207
  2. CLOZARIL [Suspect]
     Dosage: 50 MG, UNK
     Route: 048
     Dates: start: 20111213
  3. CLOZARIL [Suspect]
     Dosage: 12.5 MG DAILY
     Route: 048
     Dates: start: 20120105
  4. SENNOSIDE [Concomitant]
  5. MAGNESIUM OXIDE [Concomitant]
     Indication: CONSTIPATION
     Dosage: 1 MG, UNK
     Route: 048
     Dates: start: 20111207, end: 20120209
  6. FLUNITRAZEPAM [Concomitant]
     Indication: SCHIZOPHRENIA, UNDIFFERENTIATED TYPE
     Dosage: 2 MG, UNK
     Route: 048
     Dates: start: 20111207
  7. CLOZARIL [Suspect]
     Dosage: 150 MG, UNK
     Route: 048
     Dates: start: 20111220, end: 20111221
  8. CLONAZEPAM [Concomitant]
     Indication: SCHIZOPHRENIA, UNDIFFERENTIATED TYPE
     Dosage: 1 MG, UNK
     Route: 048
     Dates: start: 20111207

REACTIONS (4)
  - NEUTROPHIL COUNT INCREASED [None]
  - PYREXIA [None]
  - PNEUMONIA [None]
  - WHITE BLOOD CELL COUNT INCREASED [None]
